FAERS Safety Report 17077244 (Version 5)
Quarter: 2020Q1

REPORT INFORMATION
  Report Type: Spontaneous
  Country: US (occurrence: US)
  Receive Date: 20191126
  Receipt Date: 20200106
  Transmission Date: 20200409
  Serious: Yes (Other)
  Sender: FDA-Public Use
  Company Number: US-AMGEN-USASP2019194272

PATIENT
  Age: 72 Year
  Sex: Female
  Weight: 50.79 kg

DRUGS (1)
  1. PROCRIT [Suspect]
     Active Substance: ERYTHROPOIETIN
     Indication: ANAEMIA
     Dosage: UNK, 3 TIMES/WK (2,000 U/ML) (MONDAY, WEDNESDAY AND FRIDAY)
     Route: 065
     Dates: start: 2019

REACTIONS (6)
  - Visual impairment [Not Recovered/Not Resolved]
  - Anaemia [Not Recovered/Not Resolved]
  - Product storage error [Unknown]
  - Condition aggravated [Unknown]
  - Product dose omission [Unknown]
  - Fall [Unknown]

NARRATIVE: CASE EVENT DATE: 2019
